FAERS Safety Report 25154653 (Version 1)
Quarter: 2025Q2

REPORT INFORMATION
  Report Type: Spontaneous
  Country: US (occurrence: US)
  Receive Date: 20250403
  Receipt Date: 20250403
  Transmission Date: 20250717
  Serious: Yes (Other)
  Sender: Invivyd
  Company Number: US-INVIVYD-US-INV-25-000010

PATIENT
  Age: 37 Year
  Sex: Female

DRUGS (1)
  1. PEMGARDA [Suspect]
     Active Substance: PEMIVIBART
     Indication: Exposure to SARS-CoV-2
     Route: 042
     Dates: start: 20241114, end: 20241114

REACTIONS (4)
  - Back pain [Recovered/Resolved]
  - Headache [Recovered/Resolved]
  - Photophobia [Recovered/Resolved]
  - Lacrimation increased [Recovered/Resolved]

NARRATIVE: CASE EVENT DATE: 20241114
